FAERS Safety Report 20695746 (Version 3)
Quarter: 2022Q2

REPORT INFORMATION
  Report Type: Spontaneous
  Country: JP (occurrence: JP)
  Receive Date: 20220411
  Receipt Date: 20220602
  Transmission Date: 20220721
  Serious: Yes (Other)
  Sender: FDA-Public Use
  Company Number: JP-GLAXOSMITHKLINE-JP2022JPN060641

PATIENT

DRUGS (7)
  1. RELENZA [Suspect]
     Active Substance: ZANAMIVIR
     Indication: Influenza
     Dosage: 10 MG, BID, AT NOON AND EVENING
     Route: 055
     Dates: start: 20180119, end: 20180119
  2. Levocetirizine Syrup [Concomitant]
     Dosage: UNK
  3. ASVERIN POWDER [Concomitant]
     Dosage: UNK
  4. HOKUNALIN DRY SYRUP [Concomitant]
     Dosage: UNK
  5. AMBROXOL HYDROCHLORIDE [Concomitant]
     Active Substance: AMBROXOL HYDROCHLORIDE
     Dosage: UNK
  6. SINGULAIR [Concomitant]
     Active Substance: MONTELUKAST SODIUM
     Dosage: UNK
  7. CALONAL FINE GRANULES 20% [Concomitant]
     Dosage: UNK
     Dates: start: 201801

REACTIONS (5)
  - Abnormal behaviour [Recovering/Resolving]
  - Feeling abnormal [Recovering/Resolving]
  - Unresponsive to stimuli [Recovering/Resolving]
  - Inappropriate affect [Recovering/Resolving]
  - Headache [Unknown]

NARRATIVE: CASE EVENT DATE: 20180119
